FAERS Safety Report 5629157-1 (Version None)
Quarter: 2008Q1

REPORT INFORMATION
  Report Type: 
  Country: None (occurrence: None)
  Receive Date: 20080217
  Receipt Date: 20080124
  Transmission Date: 20080703
  Serious: No
  Sender: FDA-Public Use
  Company Number: US-BAXTER-2008BH000844

PATIENT
  Age: 67 Year
  Sex: Female

DRUGS (6)
  1. HEPARIN SODIUM [Suspect]
     Indication: PROPHYLAXIS
     Route: 033
     Dates: start: 20080121, end: 20080123
  2. LANTUS [Concomitant]
     Indication: DIABETES MELLITUS
     Route: 065
  3. LISINOPRIL [Concomitant]
     Indication: HYPERTENSION
     Route: 048
  4. AMLODIPINE [Concomitant]
     Indication: HYPERTENSION
     Route: 048
  5. DIANEAL [Concomitant]
     Indication: RENAL FAILURE
     Route: 065
  6. DIANEAL [Concomitant]
     Route: 065

REACTIONS (5)
  - ABDOMINAL PAIN UPPER [None]
  - ASTHENIA [None]
  - BLOOD PRESSURE DECREASED [None]
  - FEELING ABNORMAL [None]
  - PALLOR [None]
